FAERS Safety Report 4323008-3 (Version None)
Quarter: 2004Q1

REPORT INFORMATION
  Report Type: 
  Country: None (occurrence: None)
  Receive Date: 20040322
  Receipt Date: 20040311
  Transmission Date: 20041129
  Serious: Yes (Other)
  Sender: FDA-Public Use
  Company Number: HQWYE589728JAN04

PATIENT
  Age: 34 Year
  Sex: Female

DRUGS (11)
  1. ADVIL [Suspect]
     Dosage: ORAL
     Route: 048
  2. AVELOX [Suspect]
     Indication: ACUTE SINUSITIS
     Dosage: 400 MG 1X PER 1 DAY, ORAL
     Route: 048
     Dates: start: 20040112
  3. AVELOX [Suspect]
     Indication: PHARYNGITIS
     Dosage: 400 MG 1X PER 1 DAY, ORAL
     Route: 048
     Dates: start: 20040112
  4. AVELOX [Suspect]
     Indication: UPPER RESPIRATORY TRACT INFECTION
     Dosage: 400 MG 1X PER 1 DAY, ORAL
     Route: 048
     Dates: start: 20040112
  5. NSAID'S (NSAID'S) [Concomitant]
  6. CELEBREX [Concomitant]
  7. COMBIVENT [Concomitant]
  8. IMITREX [Concomitant]
  9. ULTRAM [Concomitant]
  10. CITRUCEL (METHYLCELLULOSE) [Concomitant]
  11. MIRALAX [Concomitant]

REACTIONS (6)
  - CONVULSION [None]
  - FATIGUE [None]
  - MUSCLE CRAMP [None]
  - MUSCLE SPASMS [None]
  - TREMOR [None]
  - VOMITING [None]
